FAERS Safety Report 4389387-6 (Version None)
Quarter: 2004Q3

REPORT INFORMATION
  Report Type: 
  Country: None (occurrence: None)
  Receive Date: 20040701
  Receipt Date: 20040701
  Transmission Date: 20050211
  Serious: Yes (Disabling, Other)
  Sender: FDA-Public Use
  Company Number: None

PATIENT
  Age: 26 Year
  Sex: Female
  Weight: 90.7194 kg

DRUGS (1)
  1. LEVAQUIN [Suspect]
     Indication: SINUSITIS
     Dosage: 500 MG 1 TAB PO@ ORAL
     Route: 048
     Dates: start: 20040628, end: 20040630

REACTIONS (8)
  - ARTHRALGIA [None]
  - DIZZINESS [None]
  - EYE PRURITUS [None]
  - GAIT DISTURBANCE [None]
  - HEADACHE [None]
  - PAIN IN EXTREMITY [None]
  - PALPITATIONS [None]
  - SUFFOCATION FEELING [None]
